FAERS Safety Report 5614819-2 (Version None)
Quarter: 2008Q1

REPORT INFORMATION
  Report Type: 
  Country: None (occurrence: None)
  Receive Date: 20080111
  Receipt Date: 20070305
  Transmission Date: 20080703
  Serious: Yes (Other)
  Sender: FDA-Public Use
  Company Number: HQWYE834106MAR07

PATIENT
  Age: 48 Year
  Sex: Female

DRUGS (1)
  1. PREMPRO [Suspect]
     Indication: HORMONE REPLACEMENT THERAPY
     Dosage: 0.45MG/1.5MG (FREQUENCY 1.1 UNSPECIFIED), ORAL
     Route: 048
     Dates: start: 20010301, end: 20070101

REACTIONS (5)
  - BREAST CANCER [None]
  - BREAST TENDERNESS [None]
  - IRRITABILITY [None]
  - PELVIC PAIN [None]
  - WITHDRAWAL SYNDROME [None]
